FAERS Safety Report 8882901 (Version 1)
Quarter: 2012Q4

REPORT INFORMATION
  Report Type: 
  Country: US (occurrence: US)
  Receive Date: 20121102
  Receipt Date: 20121102
  Transmission Date: 20130627
  Serious: No
  Sender: FDA-Public Use
  Company Number: US-ASTRAZENECA-2011SE70954

PATIENT
  Age: 80 Year
  Sex: Female
  Weight: 74.8 kg

DRUGS (2)
  1. CRESTOR [Suspect]
     Route: 048
  2. ZETIA [Suspect]
     Route: 065

REACTIONS (10)
  - Diarrhoea [Unknown]
  - Musculoskeletal stiffness [Unknown]
  - Liver function test [Unknown]
  - Walking aid user [Unknown]
  - Pain [Unknown]
  - Myalgia [Unknown]
  - Muscular weakness [Unknown]
  - Pain in extremity [Unknown]
  - Muscular weakness [Unknown]
  - Muscular weakness [Unknown]
